FAERS Safety Report 8953255 (Version 1)
Quarter: 2012Q4

REPORT INFORMATION
  Report Type: 
  Country: FR (occurrence: FR)
  Receive Date: 20121206
  Receipt Date: 20121206
  Transmission Date: 20130627
  Serious: Yes (Other)
  Sender: FDA-Public Use
  Company Number: FR-JNJFOC-20121200328

PATIENT
  Age: 68 Year
  Sex: Female

DRUGS (2)
  1. SPORANOX [Suspect]
     Indication: BRONCHITIS
     Dosage: a week ago
     Route: 048
     Dates: start: 201211
  2. DIGOXINE [Interacting]
     Indication: PRODUCT USED FOR UNKNOWN INDICATION
     Route: 065

REACTIONS (2)
  - Arrhythmia [Unknown]
  - Drug interaction [Unknown]
